FAERS Safety Report 8581835-0 (Version None)
Quarter: 2012Q3

REPORT INFORMATION
  Report Type: 
  Country: None (occurrence: None)
  Receive Date: 20120727
  Receipt Date: 20120711
  Transmission Date: 20120928
  Serious: Yes (Death, Other)
  Sender: FDA-Public Use
  Company Number: TPA2012A03399

PATIENT
  Age: 90 Year
  Sex: Male
  Weight: 95.2554 kg

DRUGS (5)
  1. JANUVIA [Concomitant]
  2. ACTOS [Suspect]
     Indication: TYPE 2 DIABETES MELLITUS
     Dosage: 15 MG, 1 IN 1 D ; 30 MG, 1 IN 1 D ; 45 MG, 1 IN 1 D
     Dates: start: 20020105, end: 20061005
  3. ACTOS [Suspect]
     Indication: TYPE 2 DIABETES MELLITUS
     Dosage: 15 MG, 1 IN 1 D ; 30 MG, 1 IN 1 D ; 45 MG, 1 IN 1 D
     Dates: start: 20060205, end: 20080202
  4. ACTOS [Suspect]
     Indication: TYPE 2 DIABETES MELLITUS
     Dosage: 15 MG, 1 IN 1 D ; 30 MG, 1 IN 1 D ; 45 MG, 1 IN 1 D
     Dates: start: 20010906, end: 20020105
  5. METFFORMIN HYDROCHLORIDE [Concomitant]

REACTIONS (1)
  - BLADDER CANCER [None]
